FAERS Safety Report 15734562 (Version 2)
Quarter: 2019Q1

REPORT INFORMATION
  Report Type: Other
  Country: CA (occurrence: CA)
  Receive Date: 20181218
  Receipt Date: 20190109
  Transmission Date: 20190417
  Serious: Yes (Other)
  Sender: FDA-Public Use
  Company Number: CA-APOTEX-2018AP027478

PATIENT
  Sex: Female

DRUGS (18)
  1. PAROXETINE. [Suspect]
     Active Substance: PAROXETINE
     Indication: ANXIETY
  2. CITALOPRAM HYDROBROMIDE. [Suspect]
     Active Substance: CITALOPRAM HYDROBROMIDE
     Indication: DEPRESSION
  3. FLUOXETINE HYDROCHLORIDE. [Suspect]
     Active Substance: FLUOXETINE HYDROCHLORIDE
     Indication: DEPRESSION
  4. PAROXETINE. [Suspect]
     Active Substance: PAROXETINE
     Indication: DEPRESSION
  5. CITALOPRAM HYDROBROMIDE. [Suspect]
     Active Substance: CITALOPRAM HYDROBROMIDE
     Indication: PANIC ATTACK
     Dosage: UNK
     Route: 065
  6. CITALOPRAM HYDROBROMIDE. [Suspect]
     Active Substance: CITALOPRAM HYDROBROMIDE
     Indication: ANXIETY
  7. SERTRALINE HYDROCHLORIDE. [Suspect]
     Active Substance: SERTRALINE HYDROCHLORIDE
     Indication: DEPRESSION
  8. BUSPIRONE HYDROCHLORIDE. [Suspect]
     Active Substance: BUSPIRONE HYDROCHLORIDE
     Indication: PANIC ATTACK
     Dosage: UNK
     Route: 065
  9. BUSPIRONE HYDROCHLORIDE. [Suspect]
     Active Substance: BUSPIRONE HYDROCHLORIDE
     Indication: DEPRESSION
  10. PAROXETINE. [Suspect]
     Active Substance: PAROXETINE
     Indication: PANIC ATTACK
     Dosage: UNK
     Route: 065
  11. FLUOXETINE HYDROCHLORIDE. [Suspect]
     Active Substance: FLUOXETINE HYDROCHLORIDE
     Indication: PANIC ATTACK
     Dosage: UNK
     Route: 065
  12. XANAX [Suspect]
     Active Substance: ALPRAZOLAM
     Indication: PANIC ATTACK
     Dosage: UNK
     Route: 065
  13. BUSPIRONE HYDROCHLORIDE. [Suspect]
     Active Substance: BUSPIRONE HYDROCHLORIDE
     Indication: ANXIETY
  14. FLUOXETINE HYDROCHLORIDE. [Suspect]
     Active Substance: FLUOXETINE HYDROCHLORIDE
     Indication: ANXIETY
  15. SERTRALINE HYDROCHLORIDE. [Suspect]
     Active Substance: SERTRALINE HYDROCHLORIDE
     Indication: PANIC ATTACK
     Dosage: UNK
     Route: 065
  16. XANAX [Suspect]
     Active Substance: ALPRAZOLAM
     Indication: DEPRESSION
  17. SERTRALINE HYDROCHLORIDE. [Suspect]
     Active Substance: SERTRALINE HYDROCHLORIDE
     Indication: ANXIETY
  18. XANAX [Suspect]
     Active Substance: ALPRAZOLAM
     Indication: ANXIETY

REACTIONS (5)
  - Drug use disorder [Unknown]
  - Drug dependence [Unknown]
  - Product quality issue [Unknown]
  - Drug ineffective [Unknown]
  - Product complaint [Unknown]
